FAERS Safety Report 17240473 (Version 1)
Quarter: 2020Q1

REPORT INFORMATION
  Report Type: Spontaneous
  Country: FR (occurrence: FR)
  Receive Date: 20200107
  Receipt Date: 20200107
  Transmission Date: 20200409
  Serious: Yes (Other)
  Sender: FDA-Public Use
  Company Number: FR-AUROBINDO-AUR-APL-2020-000620

PATIENT
  Age: 74 Year
  Sex: Female
  Weight: 39 kg

DRUGS (5)
  1. PROPRANOLOL [Concomitant]
     Active Substance: PROPRANOLOL HYDROCHLORIDE
     Indication: PRODUCT USED FOR UNKNOWN INDICATION
     Dosage: UNK
     Route: 048
  2. SERESTA [Concomitant]
     Active Substance: OXAZEPAM
     Indication: DEPRESSION
     Dosage: 5 MILLIGRAM, AS NECESSARY
     Route: 048
     Dates: start: 20191202
  3. AUGMENTIN [Suspect]
     Active Substance: AMOXICILLIN\CLAVULANATE POTASSIUM
     Indication: LUNG DISORDER
     Dosage: 3 GRAM, ONCE A DAY
     Route: 048
     Dates: start: 20191128, end: 20191206
  4. PAROXETINE. [Suspect]
     Active Substance: PAROXETINE
     Indication: DEPRESSION
     Dosage: 20 MILLIGRAM, ONCE A DAY
     Route: 048
     Dates: start: 20191202, end: 20191206
  5. OMEPRAZOLE. [Suspect]
     Active Substance: OMEPRAZOLE
     Indication: PRODUCT USED FOR UNKNOWN INDICATION
     Dosage: 20 MILLIGRAM, ONCE A DAY
     Route: 048
     Dates: end: 20191205

REACTIONS (1)
  - Hyponatraemia [Recovered/Resolved]

NARRATIVE: CASE EVENT DATE: 20191205
